FAERS Safety Report 15900550 (Version 1)
Quarter: 2019Q1

REPORT INFORMATION
  Report Type: Report from Study
  Country: US (occurrence: US)
  Receive Date: 20190201
  Receipt Date: 20190201
  Transmission Date: 20190417
  Serious: Yes (Life-Threatening, Hospitalization)
  Sender: FDA-Public Use
  Company Number: US-PFIZER INC-2019044343

PATIENT
  Age: 55 Year
  Sex: Male
  Weight: 99.9 kg

DRUGS (8)
  1. PREDNISONE. [Suspect]
     Active Substance: PREDNISONE
     Indication: ACUTE GRAFT VERSUS HOST DISEASE IN SKIN
     Dosage: 100 MG, 1X/DAY
     Route: 048
     Dates: start: 20180918, end: 20181002
  2. PREDNISONE. [Suspect]
     Active Substance: PREDNISONE
     Dosage: 100 MG, 2X/DAY
     Route: 048
     Dates: start: 20181011, end: 20181014
  3. PREDNISONE. [Suspect]
     Active Substance: PREDNISONE
     Dosage: 100 MG, QPM
     Route: 048
     Dates: start: 20181014, end: 20181015
  4. BLINDED THERAPY [Suspect]
     Active Substance: INVESTIGATIONAL PRODUCT
     Indication: ACUTE GRAFT VERSUS HOST DISEASE IN SKIN
     Dosage: 200 MG, 1X/DAY
     Dates: start: 20180920, end: 20181001
  5. PREDNISONE. [Suspect]
     Active Substance: PREDNISONE
     Dosage: 200 MG, 1X/DAY
     Route: 048
     Dates: start: 20181002, end: 20181005
  6. SOLU-MEDROL [Suspect]
     Active Substance: METHYLPREDNISOLONE SODIUM SUCCINATE
     Indication: ACUTE GRAFT VERSUS HOST DISEASE IN SKIN
     Dosage: 100 MG, 2X/DAY
     Route: 042
     Dates: start: 20181006, end: 20181011
  7. ACYCLOVIR. [Suspect]
     Active Substance: ACYCLOVIR
     Indication: PROPHYLAXIS AGAINST TRANSPLANT REJECTION
     Dosage: 400 MG, 3X/DAY
     Route: 048
     Dates: start: 20180718
  8. PREDNISONE. [Suspect]
     Active Substance: PREDNISONE
     Dosage: 120 MG, 1X/DAY
     Route: 048
     Dates: start: 20181015, end: 20181019

REACTIONS (4)
  - Graft versus host disease [Recovering/Resolving]
  - Cytomegalovirus viraemia [Recovering/Resolving]
  - Staphylococcal bacteraemia [Recovering/Resolving]
  - Arthritis bacterial [Recovering/Resolving]

NARRATIVE: CASE EVENT DATE: 20181005
